FAERS Safety Report 15570922 (Version 3)
Quarter: 2018Q4

REPORT INFORMATION
  Report Type: Spontaneous
  Country: JP (occurrence: JP)
  Receive Date: 20181031
  Receipt Date: 20181210
  Transmission Date: 20190205
  Serious: Yes (Death, Hospitalization)
  Sender: FDA-Public Use
  Company Number: JP-PFIZER INC-2018445725

PATIENT
  Age: 68 Year
  Sex: Male

DRUGS (6)
  1. FOSPHENYTOIN SODIUM. [Suspect]
     Active Substance: FOSPHENYTOIN SODIUM
     Dosage: 375 MG, DAILY
     Route: 042
     Dates: start: 201701
  2. WAKOBITAL [Concomitant]
     Indication: SYNCOPE
     Dosage: 30 MG, UNK
     Route: 054
  3. WAKOBITAL [Concomitant]
     Dosage: 100 MG, UNK
  4. MIDAZOLAM [Concomitant]
     Active Substance: MIDAZOLAM HYDROCHLORIDE
     Indication: SYNCOPE
     Dosage: UNK (0.05MG/H)
     Route: 042
  5. FOSPHENYTOIN SODIUM. [Suspect]
     Active Substance: FOSPHENYTOIN SODIUM
     Indication: EPILEPSY
     Dosage: 750 MG, ALTERNATE DAY
     Route: 042
     Dates: start: 201701
  6. DIAZEPAM. [Concomitant]
     Active Substance: DIAZEPAM
     Indication: SYNCOPE
     Dosage: 2.5 MG, UNK
     Route: 042

REACTIONS (1)
  - Death [Fatal]
